FAERS Safety Report 22028087 (Version 4)
Quarter: 2023Q1

REPORT INFORMATION
  Report Type: Spontaneous
  Country: AR (occurrence: AR)
  Receive Date: 20230223
  Receipt Date: 20230303
  Transmission Date: 20230417
  Serious: Yes (Hospitalization, Other)
  Sender: FDA-Public Use
  Company Number: AR-PFIZER INC-PV202300031524

PATIENT
  Age: 50 Year
  Sex: Female

DRUGS (5)
  1. VANCOMYCIN HYDROCHLORIDE [Suspect]
     Active Substance: VANCOMYCIN HYDROCHLORIDE
     Indication: Endocarditis staphylococcal
     Dosage: 1 G, EVERY 12 HOURS
  2. CEFAZOLIN [Concomitant]
     Active Substance: CEFAZOLIN
     Indication: Endocarditis staphylococcal
     Dosage: 2 G EVERY 8 HRS
  3. DAPTOMYCIN [Concomitant]
     Active Substance: DAPTOMYCIN
     Indication: Endocarditis staphylococcal
     Dosage: 10 MG, DAILY
  4. LINEZOLID [Concomitant]
     Active Substance: LINEZOLID
     Indication: Endocarditis staphylococcal
     Dosage: 600 MG EVERY 12 HOURS
     Route: 048
  5. COTRIMOXAZOLE [Concomitant]
     Active Substance: SULFAMETHOXAZOLE\TRIMETHOPRIM
     Indication: Endocarditis staphylococcal
     Dosage: 160/800 MG EVERY 8 HOURS
     Route: 048

REACTIONS (1)
  - Acute kidney injury [Recovered/Resolved]
